FAERS Safety Report 8681320 (Version 3)
Quarter: 2012Q4

REPORT INFORMATION
  Report Type: Spontaneous
  Country: US (occurrence: None)
  Receive Date: 20120709
  Receipt Date: 20120920
  Transmission Date: 20130627
  Serious: Yes (Hospitalization, Other)
  Sender: FDA-Public Use
  Company Number: ACO_30942_2012

PATIENT
  Age: 56 Year
  Sex: Male

DRUGS (3)
  1. AMPYRA [Suspect]
     Indication: MULTIPLE SCLEROSIS
     Dosage: 10 MG, BID
     Route: 048
     Dates: start: 20110226, end: 20120628
  2. BETASERON [Concomitant]
  3. LYRICA [Concomitant]

REACTIONS (15)
  - Urinary incontinence [None]
  - Eye movement disorder [None]
  - Diabetic foot [None]
  - Respiratory failure [None]
  - Unresponsive to stimuli [None]
  - Hypertension [None]
  - Convulsion [None]
  - Blood glucose increased [None]
  - Osteomyelitis [None]
  - Muscle spasms [None]
  - Neuralgia [None]
  - Vitamin D deficiency [None]
  - Relapsing-remitting multiple sclerosis [None]
  - Neuropathy peripheral [None]
  - Pruritus [None]
